FAERS Safety Report 6578355-1 (Version None)
Quarter: 2010Q1

REPORT INFORMATION
  Report Type: 
  Country: None (occurrence: None)
  Receive Date: 20100211
  Receipt Date: 20100208
  Transmission Date: 20100710
  Serious: Yes (Hospitalization)
  Sender: FDA-Public Use
  Company Number: CHPA2010US02541

PATIENT
  Age: 74 Year
  Sex: Male
  Weight: 66.667 kg

DRUGS (3)
  1. GAS-X (NCH) [Suspect]
     Indication: ABDOMINAL DISTENSION
     Dosage: 62.5 MG, UNK
     Route: 048
     Dates: start: 20100131, end: 20100131
  2. PREVACID [Concomitant]
     Indication: DUODENAL ULCER
     Dosage: UNK
     Route: 048
  3. AVODART [Concomitant]
     Indication: PROSTATIC DISORDER

REACTIONS (4)
  - FAECAL INCONTINENCE [None]
  - FLATULENCE [None]
  - PRESYNCOPE [None]
  - SYNCOPE [None]
